FAERS Safety Report 9510486 (Version 1)
Quarter: 2013Q3

REPORT INFORMATION
  Report Type: Report from Study
  Country: JP (occurrence: JP)
  Receive Date: 20130909
  Receipt Date: 20130909
  Transmission Date: 20140515
  Serious: Yes (Death, Other)
  Sender: FDA-Public Use
  Company Number: JP-TAKEDA-2013TJP000360

PATIENT
  Age: 86 Year
  Sex: Male

DRUGS (17)
  1. ALOGLIPTIN [Suspect]
  2. NESINA TABLETS 25 MG (ALOGLIPTIN BENZOATE) [Suspect]
     Indication: TYPE 2 DIABETES MELLITUS
     Route: 048
     Dates: start: 20120709, end: 20120821
  3. TAKEPRON OD [Concomitant]
     Route: 048
  4. MEDET [Concomitant]
     Indication: TYPE 2 DIABETES MELLITUS
     Route: 048
     Dates: end: 20120821
  5. AMARYL [Concomitant]
     Indication: TYPE 2 DIABETES MELLITUS
     Route: 048
     Dates: end: 20120821
  6. GRAMALIL [Concomitant]
     Route: 048
  7. DEPAS [Concomitant]
     Route: 048
  8. MAGMITT [Concomitant]
     Route: 048
  9. MILNACIPRAN HYDROCHLORIDE [Concomitant]
     Route: 048
  10. AMLODIN OD [Concomitant]
     Route: 048
  11. SENNOSIDE [Concomitant]
     Route: 048
  12. GASLON N OD [Concomitant]
     Route: 048
  13. DESYREL [Concomitant]
     Route: 048
  14. KINEDAK [Concomitant]
     Route: 048
  15. MUCODYNE [Concomitant]
     Route: 048
  16. ROCEPHIN [Concomitant]
     Route: 042
  17. MEROPEN [Concomitant]
     Route: 041

REACTIONS (1)
  - Gastric cancer [Fatal]
